FAERS Safety Report 16834461 (Version 1)
Quarter: 2019Q3

REPORT INFORMATION
  Report Type: Report from Study
  Country: US (occurrence: US)
  Receive Date: 20190920
  Receipt Date: 20190920
  Transmission Date: 20191005
  Serious: Yes (Hospitalization)
  Sender: FDA-Public Use
  Company Number: US-ACTELION-A-NJ2019-195913

PATIENT
  Age: 53 Year
  Sex: Female

DRUGS (13)
  1. HYDROXYCHLOROQUINE [Concomitant]
     Active Substance: HYDROXYCHLOROQUINE
  2. FEXOFENADINE [Concomitant]
     Active Substance: FEXOFENADINE HYDROCHLORIDE
  3. AZATHIOPRINE. [Concomitant]
     Active Substance: AZATHIOPRINE
  4. OCUVITE [Concomitant]
     Active Substance: VITAMINS
  5. GLUCOSAMIN + CHONDROITIN [Concomitant]
  6. TACROLIMUS. [Concomitant]
     Active Substance: TACROLIMUS
  7. OPSUMIT [Suspect]
     Active Substance: MACITENTAN
     Indication: PULMONARY ARTERIAL HYPERTENSION
     Dosage: 10 MG, QD
     Route: 048
     Dates: start: 201707
  8. SILDENAFIL. [Concomitant]
     Active Substance: SILDENAFIL
  9. MULTIVITAMIN [Concomitant]
     Active Substance: VITAMINS
  10. FLAXSEED [Concomitant]
     Active Substance: FLAX SEED
  11. TRIAMCINOLON [Concomitant]
  12. ASPIRIN. [Concomitant]
     Active Substance: ASPIRIN
  13. PREDNISONE. [Concomitant]
     Active Substance: PREDNISONE

REACTIONS (3)
  - Transient ischaemic attack [Unknown]
  - Paraesthesia [Recovering/Resolving]
  - Hypoaesthesia [Recovering/Resolving]

NARRATIVE: CASE EVENT DATE: 20190827
